FAERS Safety Report 9069837 (Version 1)
Quarter: 2013Q1

REPORT INFORMATION
  Report Type: Report from Study
  Country: US (occurrence: US)
  Receive Date: 20130129
  Receipt Date: 20130129
  Transmission Date: 20140127
  Serious: No
  Sender: FDA-Public Use
  Company Number: US-ABBOTT-12P-163-0942094-00

PATIENT
  Age: 55 Year
  Sex: Female

DRUGS (3)
  1. HUMIRA 40 MG/0.8 ML PEN [Suspect]
     Indication: PSORIASIS
     Dosage: TWO PENS ON DAY ONE
     Dates: start: 20120525
  2. HUMIRA 40 MG/0.8 ML PEN [Suspect]
     Dosage: ONE PEN DAY 8
  3. HUMIRA 40 MG/0.8 ML PEN [Suspect]

REACTIONS (3)
  - Increased tendency to bruise [Unknown]
  - Injection site pain [Unknown]
  - Injection site bruising [Unknown]
